FAERS Safety Report 23411043 (Version 1)
Quarter: 2024Q1

REPORT INFORMATION
  Report Type: Spontaneous
  Country: US (occurrence: None)
  Receive Date: 20240116
  Receipt Date: 20240116
  Transmission Date: 20240410
  Serious: Yes (Other)
  Sender: FDA-Public Use
  Company Number: None

PATIENT
  Age: 73 Year
  Sex: Male
  Weight: 85.5 kg

DRUGS (6)
  1. REPATHA [Suspect]
     Active Substance: EVOLOCUMAB
     Indication: Blood cholesterol increased
     Dosage: OTHER QUANTITY : 1 INJECTION(S);?OTHER FREQUENCY : EVERY 2 WEEKS;?OTHER ROUTE : SUBCUTANEOUS INJECTI
     Route: 050
     Dates: start: 20231120, end: 20231228
  2. ATIVAN [Concomitant]
     Active Substance: LORAZEPAM
  3. TESTOSTERONE CYPIONATE [Concomitant]
     Active Substance: TESTOSTERONE CYPIONATE
  4. LOSARTAN [Concomitant]
     Active Substance: LOSARTAN
  5. TYLENOL [Concomitant]
     Active Substance: ACETAMINOPHEN
  6. tramdol [Concomitant]

REACTIONS (6)
  - Bladder disorder [None]
  - Bladder pain [None]
  - Prostatic disorder [None]
  - Prostatic pain [None]
  - Micturition urgency [None]
  - Drug intolerance [None]

NARRATIVE: CASE EVENT DATE: 20240107
